FAERS Safety Report 23703723 (Version 2)
Quarter: 2024Q3

REPORT INFORMATION
  Report Type: Report from Study
  Country: CA (occurrence: CA)
  Receive Date: 20240403
  Receipt Date: 20240801
  Transmission Date: 20241017
  Serious: Yes (Hospitalization, Other)
  Sender: JOHNSON AND JOHNSON
  Company Number: CA-JNJFOC-20240352923

PATIENT
  Sex: Male

DRUGS (6)
  1. REMICADE [Suspect]
     Active Substance: INFLIXIMAB
     Indication: Ankylosing spondylitis
     Route: 041
     Dates: start: 20210322, end: 20240729
  2. CELEBREX [Concomitant]
     Active Substance: CELECOXIB
  3. NAPROXEN [Concomitant]
     Active Substance: NAPROXEN
  4. WILD ALASKAN FISH OIL PEAK EPA [Concomitant]
  5. VITAMIN D NOS [Concomitant]
     Active Substance: CHOLECALCIFEROL\ERGOCALCIFEROL
     Dosage: DAILY
  6. HERBALS\TURMERIC [Concomitant]
     Active Substance: HERBALS\TURMERIC
     Dosage: DAILY

REACTIONS (2)
  - Intervertebral disc displacement [Recovering/Resolving]
  - Hypoaesthesia [Not Recovered/Not Resolved]
